FAERS Safety Report 9509589 (Version 1)
Quarter: 2013Q3

REPORT INFORMATION
  Report Type: Spontaneous
  Country: US (occurrence: US)
  Receive Date: 20130909
  Receipt Date: 20130909
  Transmission Date: 20140515
  Serious: No
  Sender: FDA-Public Use
  Company Number: US-BRISTOL-MYERS SQUIBB COMPANY-19009570

PATIENT
  Age: 53 Year
  Sex: Male

DRUGS (1)
  1. ABILIFY [Suspect]
     Indication: SCHIZOAFFECTIVE DISORDER
     Dosage: STARTED SOMETIME PRIOR TO 2006
     Route: 048
     Dates: end: 201104

REACTIONS (4)
  - Testicular pain [Unknown]
  - Testicular swelling [Unknown]
  - Vomiting [Unknown]
  - Nausea [Unknown]
